FAERS Safety Report 12549363 (Version 1)
Quarter: 2016Q3

REPORT INFORMATION
  Report Type: Spontaneous
  Country: US (occurrence: US)
  Receive Date: 20160712
  Receipt Date: 20160712
  Transmission Date: 20161109
  Serious: Yes (Other)
  Sender: FDA-Public Use
  Company Number: US-ALLERGAN-1654577US

PATIENT
  Sex: Female

DRUGS (1)
  1. DALVANCE [Suspect]
     Active Substance: DALBAVANCIN
     Indication: PRODUCT USED FOR UNKNOWN INDICATION
     Dosage: 1000 MG, SINGLE
     Route: 042
     Dates: start: 201604, end: 201604

REACTIONS (3)
  - Dyspnoea [Unknown]
  - Anaphylactic reaction [Unknown]
  - Throat irritation [Unknown]

NARRATIVE: CASE EVENT DATE: 201604
